FAERS Safety Report 8136799-0 (Version None)
Quarter: 2012Q1

REPORT INFORMATION
  Report Type: 
  Country: None (occurrence: None)
  Receive Date: 20120214
  Receipt Date: 20120208
  Transmission Date: 20120608
  Serious: Yes (Hospitalization, Other)
  Sender: FDA-Public Use
  Company Number: SE-PFIZER INC-2012033859

PATIENT
  Age: 88 Year
  Sex: Female

DRUGS (5)
  1. ENALAPRIL MALEATE [Suspect]
     Indication: ESSENTIAL HYPERTENSION
     Dosage: UNK
     Dates: end: 20111116
  2. HYDROXOCOBALAMIN [Concomitant]
     Dosage: UNK
  3. SIMVASTATIN [Concomitant]
     Dosage: UNK
  4. MOVIPREP [Concomitant]
     Dosage: UNK
  5. GLIPIZIDE [Suspect]
     Indication: DIABETES MELLITUS
     Dosage: UNK
     Dates: end: 20111116

REACTIONS (6)
  - MYOCARDIAL INFARCTION [None]
  - PLEURAL EFFUSION [None]
  - LEFT VENTRICULAR HYPERTROPHY [None]
  - PULMONARY OEDEMA [None]
  - AORTIC VALVE STENOSIS [None]
  - BLOOD CREATININE INCREASED [None]
